FAERS Safety Report 20160626 (Version 1)
Quarter: 2021Q4

REPORT INFORMATION
  Report Type: Report from Study
  Country: US (occurrence: US)
  Receive Date: 20211208
  Receipt Date: 20211208
  Transmission Date: 20220303
  Serious: Yes (Other)
  Sender: FDA-Public Use
  Company Number: US-TAKEDA-2021TUS077171

PATIENT
  Sex: Male

DRUGS (1)
  1. VEDOLIZUMAB [Suspect]
     Active Substance: VEDOLIZUMAB
     Indication: Product used for unknown indication
     Dosage: 300 MILLIGRAM
     Route: 042

REACTIONS (7)
  - Diabetes mellitus [Unknown]
  - Anaphylactic shock [Unknown]
  - Neuropathy peripheral [Unknown]
  - Abdominal pain upper [Unknown]
  - Gait disturbance [Unknown]
  - Sleep apnoea syndrome [Unknown]
  - Staphylococcal infection [Unknown]
